FAERS Safety Report 8036964-7 (Version None)
Quarter: 2011Q4

REPORT INFORMATION
  Report Type: 
  Country: None (occurrence: None)
  Receive Date: 20111202
  Receipt Date: 20100503
  Transmission Date: 20120403
  Serious: Yes (Hospitalization)
  Sender: FDA-Public Use
  Company Number: 2010SP025237

PATIENT
  Age: 28 Year
  Sex: Female
  Weight: 75.7507 kg

DRUGS (1)
  1. NUVARING [Suspect]
     Indication: CONTRACEPTION
     Dosage: VAG
     Route: 067
     Dates: start: 20080329, end: 20081110

REACTIONS (1)
  - PULMONARY EMBOLISM [None]
